FAERS Safety Report 20133912 (Version 8)
Quarter: 2022Q2

REPORT INFORMATION
  Report Type: Report from Study
  Country: MX (occurrence: MX)
  Receive Date: 20211201
  Receipt Date: 20220530
  Transmission Date: 20220720
  Serious: Yes (Other)
  Sender: FDA-Public Use
  Company Number: MX-NOVARTISPH-NVSC2021MX271738

PATIENT
  Age: 61 Year
  Sex: Female
  Weight: 82 kg

DRUGS (2)
  1. IMATINIB [Suspect]
     Active Substance: IMATINIB
     Indication: Chronic myeloid leukaemia
     Dosage: 400 MG, Q12H
     Route: 048
     Dates: start: 202107
  2. TASIGNA [Suspect]
     Active Substance: NILOTINIB
     Indication: Chronic myeloid leukaemia
     Dosage: UNK
     Route: 048

REACTIONS (40)
  - Alcohol poisoning [Not Recovered/Not Resolved]
  - Chronic myeloid leukaemia [Unknown]
  - Malignant neoplasm progression [Unknown]
  - COVID-19 [Recovered/Resolved with Sequelae]
  - Dyspnoea [Recovered/Resolved with Sequelae]
  - Illness [Recovered/Resolved with Sequelae]
  - Oxygen saturation decreased [Recovered/Resolved]
  - Pneumonitis [Recovered/Resolved]
  - Vertigo [Recovered/Resolved]
  - Nausea [Not Recovered/Not Resolved]
  - Wound decomposition [Unknown]
  - Meniscus injury [Unknown]
  - Ulcer [Unknown]
  - Tongue disorder [Unknown]
  - Gait disturbance [Unknown]
  - Stress [Not Recovered/Not Resolved]
  - Ear inflammation [Not Recovered/Not Resolved]
  - Eye inflammation [Recovered/Resolved]
  - Bone pain [Not Recovered/Not Resolved]
  - Gastritis [Not Recovered/Not Resolved]
  - Arthralgia [Not Recovered/Not Resolved]
  - Hypertension [Unknown]
  - Dizziness [Not Recovered/Not Resolved]
  - Fatigue [Unknown]
  - Constipation [Unknown]
  - Dry mouth [Unknown]
  - Stomatitis [Recovered/Resolved]
  - Malaise [Unknown]
  - Headache [Unknown]
  - Abdominal pain upper [Not Recovered/Not Resolved]
  - Weight loss poor [Unknown]
  - Proctalgia [Unknown]
  - Abnormal faeces [Unknown]
  - Thyroid disorder [Unknown]
  - Depression [Not Recovered/Not Resolved]
  - Anal fissure [Unknown]
  - Fluid retention [Unknown]
  - Weight decreased [Unknown]
  - Weight fluctuation [Not Recovered/Not Resolved]
  - Ligament disorder [Unknown]

NARRATIVE: CASE EVENT DATE: 20210901
